FAERS Safety Report 4626758-4 (Version None)
Quarter: 2005Q2

REPORT INFORMATION
  Report Type: 
  Country: None (occurrence: None)
  Receive Date: 20050405
  Receipt Date: 20050324
  Transmission Date: 20051028
  Serious: Yes (Hospitalization)
  Sender: FDA-Public Use
  Company Number: FR-BRISTOL-MYERS SQUIBB COMPANY-12915179

PATIENT
  Age: 54 Year
  Sex: Male

DRUGS (6)
  1. GLUCOPHAGE [Suspect]
     Indication: DIABETES MELLITUS NON-INSULIN-DEPENDENT
     Dates: end: 20020401
  2. SOPROL [Suspect]
     Indication: HYPERTENSION
     Route: 048
     Dates: start: 20020101, end: 20020401
  3. COVERSYL [Suspect]
     Indication: HYPERTENSION
     Route: 048
     Dates: start: 20020401
  4. FLUIDEX [Suspect]
     Indication: HYPERTENSION
     Dates: end: 20020401
  5. MEDIATOR [Suspect]
     Indication: DYSLIPIDAEMIA
  6. NOVONORM [Concomitant]
     Dates: end: 20020401

REACTIONS (5)
  - MUSCLE ATROPHY [None]
  - PEMPHIGOID [None]
  - RENAL ONCOCYTOMA [None]
  - SPINAL COMPRESSION FRACTURE [None]
  - WEIGHT DECREASED [None]
